FAERS Safety Report 20421860 (Version 1)
Quarter: 2022Q1

REPORT INFORMATION
  Report Type: Spontaneous
  Country: US (occurrence: None)
  Receive Date: 20220203
  Receipt Date: 20220203
  Transmission Date: 20220423
  Serious: No
  Sender: FDA-Public Use
  Company Number: None

PATIENT
  Age: 61 Year
  Sex: Male

DRUGS (1)
  1. COSENTYX [Suspect]
     Active Substance: SECUKINUMAB
     Indication: Psoriatic arthropathy
     Dosage: 150MG EVERY 4 WEEKS SQ?
     Route: 058
     Dates: start: 20210518, end: 202111

REACTIONS (3)
  - Herpes zoster [None]
  - Nerve injury [None]
  - Disease complication [None]

NARRATIVE: CASE EVENT DATE: 20211101
